FAERS Safety Report 16290646 (Version 1)
Quarter: 2019Q2

REPORT INFORMATION
  Report Type: Spontaneous
  Country: IT (occurrence: IT)
  Receive Date: 20190509
  Receipt Date: 20190509
  Transmission Date: 20190711
  Serious: Yes (Death)
  Sender: FDA-Public Use
  Company Number: IT-SA-2019SA124643

PATIENT
  Age: 78 Year
  Sex: Female

DRUGS (11)
  1. TRIATEC [RAMIPRIL] [Concomitant]
     Active Substance: RAMIPRIL
     Dosage: 2 DF, UNK
     Route: 048
  2. ELIQUIS [Interacting]
     Active Substance: APIXABAN
     Indication: ATRIAL FIBRILLATION
     Dosage: 2 DF, QD
     Route: 048
     Dates: start: 20170101, end: 20190423
  3. BISOPROLOLO EG [Concomitant]
     Dosage: 1 DF, UNK
     Route: 048
  4. TOVANOR BREEZHALER [Concomitant]
     Active Substance: GLYCOPYRROLATE
     Dosage: 1 DF, UNK
     Route: 050
  5. ZYLORIC [Concomitant]
     Active Substance: ALLOPURINOL
     Dosage: 1 DF, UNK
     Route: 048
  6. XANAX [Concomitant]
     Active Substance: ALPRAZOLAM
     Dosage: 10 DF, UNK
     Route: 048
  7. CLEXANE T [Suspect]
     Active Substance: ENOXAPARIN SODIUM
     Indication: THROMBOSIS PROPHYLAXIS
     Dosage: 2 DF, QD
     Route: 058
     Dates: start: 20190424, end: 20190427
  8. LANOXIN [Concomitant]
     Active Substance: DIGOXIN
     Dosage: 1 DF, UNK
     Route: 048
  9. LUVION [CANRENOIC ACID] [Concomitant]
     Active Substance: CANRENOIC ACID
     Dosage: 1 DF, UNK
     Route: 048
  10. HALDOL [Concomitant]
     Active Substance: HALOPERIDOL
     Dosage: 1 MG, UNK
     Route: 048
  11. LASIX [Concomitant]
     Active Substance: FUROSEMIDE
     Dosage: 1 DF, UNK
     Route: 048

REACTIONS (2)
  - Retroperitoneal haematoma [Fatal]
  - Drug interaction [Fatal]

NARRATIVE: CASE EVENT DATE: 20190427
